FAERS Safety Report 16361273 (Version 1)
Quarter: 2019Q2

REPORT INFORMATION
  Report Type: Spontaneous
  Country: IT (occurrence: IT)
  Receive Date: 20190528
  Receipt Date: 20190528
  Transmission Date: 20190711
  Serious: Yes (Death)
  Sender: FDA-Public Use
  Company Number: IT-JNJFOC-20190530195

PATIENT
  Age: 77 Year
  Sex: Male
  Weight: 86 kg

DRUGS (4)
  1. LEUPRORELIN [Concomitant]
     Active Substance: LEUPROLIDE ACETATE
     Route: 030
  2. GEMSOL [Suspect]
     Active Substance: GEMCITABINE HYDROCHLORIDE
     Indication: BLADDER CANCER
     Dosage: CUMULATIVE DOSE 1100 MG
     Route: 041
     Dates: start: 20190404, end: 20190502
  3. CISPLATINO [Suspect]
     Active Substance: CISPLATIN
     Indication: BLADDER CANCER
     Dosage: CUMULATIVE DOSE 80 MG
     Route: 041
     Dates: start: 20190404, end: 20190502
  4. ZYTIGA [Suspect]
     Active Substance: ABIRATERONE ACETATE
     Indication: PROSTATE CANCER
     Dosage: CUMULATIVE DOSE 1490000 MG
     Route: 048
     Dates: start: 20150410, end: 20190508

REACTIONS (1)
  - Cardiac arrest [Fatal]

NARRATIVE: CASE EVENT DATE: 20190509
